FAERS Safety Report 19370879 (Version 2)
Quarter: 2021Q3

REPORT INFORMATION
  Report Type: Report from Study
  Country: US (occurrence: US)
  Receive Date: 20210604
  Receipt Date: 20210803
  Transmission Date: 20211014
  Serious: Yes (Hospitalization)
  Sender: FDA-Public Use
  Company Number: US-ROCHE-2803284

PATIENT
  Age: 69 Year
  Sex: Male
  Weight: 80.9 kg

DRUGS (12)
  1. IXAZOMIB [Suspect]
     Active Substance: IXAZOMIB
     Indication: PLASMA CELL MYELOMA
     Dosage: THE LAST DOSE OF STUDY TREATMENT PRIOR TO THE EVENT WAS ADMINISTERED ON 12/MAY/2021
     Route: 048
     Dates: start: 20210504
  2. ACYCLOVIR. [Concomitant]
     Active Substance: ACYCLOVIR
  3. VITAMIN D3 [Concomitant]
     Active Substance: CHOLECALCIFEROL
  4. ZOLEDRONIC ACID [Concomitant]
     Active Substance: ZOLEDRONIC ACID
  5. KLOR?CON M20 [Concomitant]
     Active Substance: POTASSIUM CHLORIDE
  6. DEXAMETHASONE. [Suspect]
     Active Substance: DEXAMETHASONE
     Indication: PLASMA CELL MYELOMA
     Route: 065
     Dates: start: 20210218
  7. ELIQUIS [Concomitant]
     Active Substance: APIXABAN
  8. LEVOTHYROXINE. [Concomitant]
     Active Substance: LEVOTHYROXINE
  9. COBIMETINIB. [Suspect]
     Active Substance: COBIMETINIB
     Indication: PLASMA CELL MYELOMA
     Dosage: THE LAST DOSE FOR COBIMETINIB PRIOR TO THE EVENT WAS ON 12/MAR/2021
     Route: 065
     Dates: start: 20210218
  10. OMEPRAZOLE. [Concomitant]
     Active Substance: OMEPRAZOLE
  11. POMALIDOMIDE [Suspect]
     Active Substance: POMALIDOMIDE
     Indication: PLASMA CELL MYELOMA
     Dosage: THE LAST DOSE OF STUDY TREATMENT PRIOR TO THE EVENT WAS ADMINISTERED ON 12/MAY/2021
     Route: 048
     Dates: start: 20210504
  12. VITAMINE B12 [Concomitant]
     Active Substance: CYANOCOBALAMIN

REACTIONS (5)
  - Serous retinopathy [Recovered/Resolved]
  - Anaemia [Unknown]
  - Platelet count decreased [Unknown]
  - Neutrophil count decreased [Unknown]
  - Anaemia [Recovered/Resolved]

NARRATIVE: CASE EVENT DATE: 20210318
